FAERS Safety Report 4846684-5 (Version None)
Quarter: 2005Q4

REPORT INFORMATION
  Report Type: 
  Country: None (occurrence: None)
  Receive Date: 20051202
  Receipt Date: 20051121
  Transmission Date: 20060501
  Serious: Yes (Hospitalization)
  Sender: FDA-Public Use
  Company Number: 2005073249

PATIENT
  Age: 30 Year
  Sex: Female
  Weight: 92 kg

DRUGS (4)
  1. LYRICA [Suspect]
     Indication: BACK PAIN
     Dosage: 300 MG (150 MG, 2 IN 1 D), ORAL
     Route: 048
     Dates: start: 20041129, end: 20050414
  2. LYRICA [Suspect]
     Indication: PAIN IN EXTREMITY
     Dosage: 300 MG (150 MG, 2 IN 1 D), ORAL
     Route: 048
     Dates: start: 20041129, end: 20050414
  3. DICONAL (CYCLIZINE HYDROCHLORIDE, DIPIPANONE HYDROCHLORIDE [Concomitant]
  4. DIAZEPAM [Concomitant]

REACTIONS (1)
  - OCULOGYRATION [None]
